FAERS Safety Report 24602199 (Version 1)
Quarter: 2024Q4

REPORT INFORMATION
  Report Type: Spontaneous
  Country: CH (occurrence: CH)
  Receive Date: 20241111
  Receipt Date: 20241111
  Transmission Date: 20250115
  Serious: Yes (Other)
  Sender: BAXTER
  Company Number: None

PATIENT
  Age: 41 Year
  Sex: Male

DRUGS (64)
  1. CYCLOPHOSPHAMIDE [Suspect]
     Active Substance: CYCLOPHOSPHAMIDE
     Dosage: D1-D2: TOTAL DOSE = 880 MG
     Route: 040
     Dates: start: 20240727, end: 20240728
  2. MESNA [Suspect]
     Active Substance: MESNA
     Dosage: UNK
     Route: 065
     Dates: start: 20240523, end: 20240523
  3. MESNA [Suspect]
     Active Substance: MESNA
     Dosage: UNK
     Route: 065
     Dates: start: 20240606, end: 20240606
  4. MESNA [Suspect]
     Active Substance: MESNA
     Dosage: 800 MILLIGRAM/SQ.METER, ONCE A DAY
     Route: 040
     Dates: start: 20240727, end: 20240728
  5. METHOTREXATE SODIUM [Suspect]
     Active Substance: METHOTREXATE SODIUM
     Dosage: 15 MG, 1 TOTAL
     Route: 037
     Dates: start: 20240517, end: 20240517
  6. METHOTREXATE SODIUM [Suspect]
     Active Substance: METHOTREXATE SODIUM
     Dosage: 15 MG, 1 TOTAL
     Route: 037
     Dates: start: 20240521, end: 20240521
  7. METHOTREXATE SODIUM [Suspect]
     Active Substance: METHOTREXATE SODIUM
     Dosage: 15 MG, 1 TOTAL
     Route: 037
     Dates: start: 20240524, end: 20240524
  8. METHOTREXATE SODIUM [Suspect]
     Active Substance: METHOTREXATE SODIUM
     Dosage: 15 MG, 1 TOTAL
     Route: 037
     Dates: start: 20240527, end: 20240527
  9. METHOTREXATE SODIUM [Suspect]
     Active Substance: METHOTREXATE SODIUM
     Dosage: 15 MG, 1 TOTAL
     Route: 037
     Dates: start: 20240530, end: 20240530
  10. METHOTREXATE SODIUM [Suspect]
     Active Substance: METHOTREXATE SODIUM
     Dosage: 15 MG, 1 TOTAL
     Route: 037
     Dates: start: 20240603, end: 20240603
  11. METHOTREXATE SODIUM [Suspect]
     Active Substance: METHOTREXATE SODIUM
     Dosage: 15 MG, 1 TOTAL
     Route: 037
     Dates: start: 20240606, end: 20240606
  12. METHOTREXATE SODIUM [Suspect]
     Active Substance: METHOTREXATE SODIUM
     Dosage: 15 MG, 1 TOTAL
     Route: 037
     Dates: start: 20240716, end: 20240716
  13. METHOTREXATE SODIUM [Suspect]
     Active Substance: METHOTREXATE SODIUM
     Dosage: 15 MG, 1 TOTAL
     Route: 037
     Dates: start: 20240726, end: 20240726
  14. METHOTREXATE SODIUM [Suspect]
     Active Substance: METHOTREXATE SODIUM
     Dosage: 15 MG, 1 TOTAL
     Route: 037
     Dates: start: 20240809, end: 20240809
  15. METHOTREXATE [Suspect]
     Active Substance: METHOTREXATE
     Dosage: 4500 MILLIGRAM/SQ.METER, 1 TOTAL
     Route: 040
     Dates: start: 20240713, end: 20240713
  16. METHOTREXATE [Suspect]
     Active Substance: METHOTREXATE
     Dosage: 500 MILLIGRAM/SQ.METER, 1 TOTAL
     Route: 040
     Dates: start: 20240713, end: 20240713
  17. METHOTREXATE [Suspect]
     Active Substance: METHOTREXATE
     Dosage: 44 MILLIGRAMS, 1 TOTAL
     Route: 040
     Dates: start: 20240727, end: 20240727
  18. METHOTREXATE [Suspect]
     Active Substance: METHOTREXATE
     Dosage: 44 MILLIGRAMS, 1 TOTAL
     Route: 040
     Dates: start: 20240810, end: 20240810
  19. CYTARABINE [Suspect]
     Active Substance: CYTARABINE
     Dosage: 40 MG, 1 TOTAL
     Route: 037
     Dates: start: 20240521, end: 20240521
  20. CYTARABINE [Suspect]
     Active Substance: CYTARABINE
     Dosage: 40 MG, 1 TOTAL
     Route: 037
     Dates: start: 20240524, end: 20240524
  21. CYTARABINE [Suspect]
     Active Substance: CYTARABINE
     Dosage: 40 MG, 1 TOTAL
     Route: 037
     Dates: start: 20240527, end: 20240527
  22. CYTARABINE [Suspect]
     Active Substance: CYTARABINE
     Dosage: 40 MG, 1 TOTAL
     Route: 037
     Dates: start: 20240530, end: 20240530
  23. CYTARABINE [Suspect]
     Active Substance: CYTARABINE
     Dosage: 40 MG, 1 TOTAL
     Route: 037
     Dates: start: 20240603, end: 20240603
  24. CYTARABINE [Suspect]
     Active Substance: CYTARABINE
     Dosage: 40 MG, 1 TOTAL
     Route: 037
     Dates: start: 20240606, end: 20240606
  25. CYTARABINE [Suspect]
     Active Substance: CYTARABINE
     Dosage: 40 MG, 1 TOTAL
     Route: 037
     Dates: start: 20240716, end: 20240716
  26. CYTARABINE [Suspect]
     Active Substance: CYTARABINE
     Dosage: 40 MG, 1 TOTAL
     Route: 037
     Dates: start: 20240726, end: 20240726
  27. CYTARABINE [Suspect]
     Active Substance: CYTARABINE
     Dosage: 40 MG, 1 TOTAL
     Route: 037
     Dates: start: 20240809, end: 20240809
  28. CYTARABINE [Suspect]
     Active Substance: CYTARABINE
     Dosage: 2000 MILLIGRAM/SQ.METER, ONCE A DAY
     Route: 040
     Dates: start: 20240628, end: 20240629
  29. VINCRISTINE [Suspect]
     Active Substance: VINCRISTINE
     Dosage: 2 MILLIGRAMS, 1 TOTAL
     Route: 040
     Dates: start: 20240523, end: 20240523
  30. VINCRISTINE [Suspect]
     Active Substance: VINCRISTINE
     Dosage: 2 MILLIGRAMS, 1 TOTAL
     Route: 040
     Dates: start: 20240530, end: 20240530
  31. VINCRISTINE [Suspect]
     Active Substance: VINCRISTINE
     Dosage: 2 MILLIGRAMS, 1 TOTAL
     Route: 040
     Dates: start: 20240606, end: 20240606
  32. VINCRISTINE [Suspect]
     Active Substance: VINCRISTINE
     Dosage: 2 MILLIGRAMS, 1 TOTAL
     Route: 040
     Dates: start: 20240613, end: 20240613
  33. VINCRISTINE [Suspect]
     Active Substance: VINCRISTINE
     Dosage: 2 MILLIGRAMS, 1 TOTAL
     Route: 040
     Dates: start: 20240713, end: 20240713
  34. DAUNORUBICIN [Concomitant]
     Active Substance: DAUNORUBICIN
     Dosage: 155 MILLIGRAMS
     Route: 065
     Dates: start: 20240523, end: 20240525
  35. DAUNORUBICIN [Concomitant]
     Active Substance: DAUNORUBICIN
     Dosage: DT=100 MG
     Route: 065
     Dates: start: 20240606, end: 20240607
  36. METHYLPREDNISOLONE [Concomitant]
     Active Substance: METHYLPREDNISOLONE
     Dosage: 40 MILLIGRAMS, 1 TOTAL
     Route: 037
     Dates: start: 20240521, end: 20240521
  37. METHYLPREDNISOLONE [Concomitant]
     Active Substance: METHYLPREDNISOLONE
     Dosage: 40 MILLIGRAMS, 1 TOTAL
     Route: 037
     Dates: start: 20240524, end: 20240524
  38. METHYLPREDNISOLONE [Concomitant]
     Active Substance: METHYLPREDNISOLONE
     Dosage: 40 MILLIGRAMS, 1 TOTAL
     Route: 037
     Dates: start: 20240527, end: 20240527
  39. METHYLPREDNISOLONE [Concomitant]
     Active Substance: METHYLPREDNISOLONE
     Dosage: 40 MILLIGRAMS, 1 TOTAL
     Route: 037
     Dates: start: 20240530, end: 20240530
  40. METHYLPREDNISOLONE [Concomitant]
     Active Substance: METHYLPREDNISOLONE
     Dosage: 40 MILLIGRAMS, 1 TOTAL
     Route: 037
     Dates: start: 20240603, end: 20240603
  41. METHYLPREDNISOLONE [Concomitant]
     Active Substance: METHYLPREDNISOLONE
     Dosage: 40 MILLIGRAMS, 1 TOTAL
     Route: 037
     Dates: start: 20240606, end: 20240606
  42. METHYLPREDNISOLONE [Concomitant]
     Active Substance: METHYLPREDNISOLONE
     Dosage: 40 MILLIGRAMS, 1 TOTAL
     Route: 037
     Dates: start: 20240716, end: 20240716
  43. METHYLPREDNISOLONE [Concomitant]
     Active Substance: METHYLPREDNISOLONE
     Dosage: 40 MILLIGRAMS, 1 TOTAL
     Route: 037
     Dates: start: 20240726, end: 20240726
  44. METHYLPREDNISOLONE [Concomitant]
     Active Substance: METHYLPREDNISOLONE
     Dosage: 40 MILLIGRAMS, 1 TOTAL
     Route: 037
     Dates: start: 20240809, end: 20240809
  45. ASPARAGINASE [Concomitant]
     Active Substance: ASPARAGINASE
     Dosage: D20, D22, D24, D26, D28; DT=50,000 IU
     Route: 065
     Dates: start: 20240612, end: 20240620
  46. DEXAMETHASONE S/PH [Concomitant]
     Dosage: 10 MILLIGRAMS, EVERY 12 HOURS
     Route: 065
     Dates: start: 20240628, end: 20240629
  47. FILGRASTIM [Concomitant]
     Active Substance: FILGRASTIM
     Dosage: 5 MICROGRAM.KILOGRAM, EVERY 12 HOURS
     Route: 065
     Dates: start: 20240705, end: 20240709
  48. LEUCOVORIN CALCIUM [Concomitant]
     Active Substance: LEUCOVORIN CALCIUM
     Dosage: 25 MILLIGRAMS, EVERY 12 HOURS
     Route: 065
     Dates: start: 20240714, end: 20240714
  49. LEUCOVORIN CALCIUM [Concomitant]
     Active Substance: LEUCOVORIN CALCIUM
     Dosage: 25 MG 5X/D
     Route: 065
     Dates: start: 20240715, end: 20240716
  50. MERCAPTOPURINE [Concomitant]
     Active Substance: MERCAPTOPURINE
     Dosage: 60 MILLIGRAM/SQ.METER, ONCE A DAY
     Route: 065
     Dates: start: 20240713, end: 20240720
  51. MERCAPTOPURINE [Concomitant]
     Active Substance: MERCAPTOPURINE
     Dosage: 25 MG 5X/D
     Route: 065
     Dates: start: 20240715, end: 20240716
  52. ETOPOPHOS [Concomitant]
     Active Substance: ETOPOSIDE PHOSPHATE
     Dosage: DT = 132 MG, HOLDER NAME: BRISTOL-MYERS SQUIBB
     Route: 065
     Dates: start: 20240727, end: 20240728
  53. ONDANSETRON [Concomitant]
     Active Substance: ONDANSETRON
     Dosage: UNK
     Route: 065
  54. ENOXAPARIN SODIUM [Concomitant]
     Active Substance: ENOXAPARIN SODIUM
     Dosage: UNK
     Route: 065
  55. AMPHOTERICIN B [Concomitant]
     Active Substance: AMPHOTERICIN B
     Dosage: UNK
     Route: 065
  56. CETIRIZINE [Concomitant]
     Active Substance: CETIRIZINE HYDROCHLORIDE
     Dosage: UNK
     Route: 065
  57. MAGALDRATE [Concomitant]
     Active Substance: MAGALDRATE
     Dosage: UNK
     Route: 065
  58. OXAZEPAM [Concomitant]
     Active Substance: OXAZEPAM
     Dosage: UNK
     Route: 065
  59. ACETAMINOPHEN [Concomitant]
     Active Substance: ACETAMINOPHEN
     Dosage: UNK
     Route: 065
  60. TRAMADOL [Concomitant]
     Active Substance: TRAMADOL
     Dosage: UNK
     Route: 065
  61. VALACYCLOVIR HYDROCHLORIDE [Concomitant]
     Active Substance: VALACYCLOVIR HYDROCHLORIDE
     Dosage: UNK
     Route: 065
  62. VITAMIN B1 [Concomitant]
     Active Substance: THIAMINE HYDROCHLORIDE
     Dosage: UNK
     Route: 065
  63. VITAMIN D3 [Concomitant]
     Active Substance: CHOLECALCIFEROL
     Dosage: UNK
     Route: 065
  64. VITAMIN B COMPLEX [Concomitant]
     Active Substance: CYANOCOBALAMIN\DEXPANTHENOL\NIACINAMIDE\PYRIDOXINE HYDROCHLORIDE\RIBOFLAVIN 5^-PHOSPHATE SODIUM\THIA
     Dosage: UNK
     Route: 065

REACTIONS (6)
  - Polyneuropathy [Not Recovered/Not Resolved]
  - Muscular weakness [Not Recovered/Not Resolved]
  - Back pain [Not Recovered/Not Resolved]
  - Pain in extremity [Not Recovered/Not Resolved]
  - Livedo reticularis [Not Recovered/Not Resolved]
  - Hypoaesthesia [Not Recovered/Not Resolved]

NARRATIVE: CASE EVENT DATE: 20240712
